FAERS Safety Report 4481268-2 (Version None)
Quarter: 2004Q4

REPORT INFORMATION
  Report Type: 
  Country: None (occurrence: None)
  Receive Date: 20040923
  Receipt Date: 20040723
  Transmission Date: 20050328
  Serious: No
  Sender: FDA-Public Use
  Company Number: USA030435568

PATIENT
  Age: 92 Year
  Sex: Female
  Weight: 53 kg

DRUGS (4)
  1. FORTEO [Suspect]
     Indication: OSTEOPOROSIS
     Dosage: 20 UG DAY
  2. CALCIUM [Concomitant]
  3. LOTREL [Concomitant]
  4. TOLECTIN [Concomitant]

REACTIONS (10)
  - BONE PAIN [None]
  - DIZZINESS [None]
  - DRUG INEFFECTIVE [None]
  - FEELING ABNORMAL [None]
  - HAND DEFORMITY [None]
  - MASS [None]
  - MUSCULOSKELETAL STIFFNESS [None]
  - PAIN IN EXTREMITY [None]
  - TREMOR [None]
  - WEIGHT DECREASED [None]
